FAERS Safety Report 8846852 (Version 1)
Quarter: 2012Q4

REPORT INFORMATION
  Report Type: Spontaneous
  Country: US (occurrence: None)
  Receive Date: 20121017
  Receipt Date: 20121017
  Transmission Date: 20130627
  Serious: Yes (Other)
  Sender: FDA-Public Use
  Company Number: None

PATIENT
  Age: 76 Year
  Sex: Female
  Weight: 57.15 kg

DRUGS (1)
  1. CLARITIN REDITABS [Suspect]
     Indication: SEASONAL ALLERGY
     Route: 048
     Dates: start: 20120422, end: 20120422

REACTIONS (4)
  - Stomatitis [None]
  - Oral pain [None]
  - Aphagia [None]
  - Periodontal disease [None]
